FAERS Safety Report 9879888 (Version 2)
Quarter: 2014Q4

REPORT INFORMATION
  Report Type: Spontaneous
  Country: US (occurrence: US)
  Receive Date: 20140206
  Receipt Date: 20141016
  Transmission Date: 20150529
  Serious: Yes (Other)
  Sender: FDA-Public Use
  Company Number: US-009507513-1402USA002128

PATIENT
  Sex: Female

DRUGS (1)
  1. NUVARING [Suspect]
     Active Substance: ETHINYL ESTRADIOL\ETONOGESTREL
     Indication: PRODUCT USED FOR UNKNOWN INDICATION
     Route: 067

REACTIONS (10)
  - Bacterial vaginosis [Unknown]
  - Peripheral artery stenosis [Unknown]
  - Intermittent claudication [Unknown]
  - Dysfunctional uterine bleeding [Unknown]
  - Anorgasmia [Unknown]
  - Vaginal discharge [Unknown]
  - Menopausal symptoms [Unknown]
  - Acne [Unknown]
  - Embolism arterial [Unknown]
  - Endarterectomy [Unknown]

NARRATIVE: CASE EVENT DATE: 20110325
